FAERS Safety Report 6447665-0 (Version None)
Quarter: 2009Q4

REPORT INFORMATION
  Report Type: 
  Country: None (occurrence: None)
  Receive Date: 20091120
  Receipt Date: 20091111
  Transmission Date: 20100525
  Serious: Yes (Hospitalization)
  Sender: FDA-Public Use
  Company Number: DE-RANBAXY-2009RR-23126

PATIENT
  Age: 38 Year
  Sex: Male
  Weight: 77 kg

DRUGS (1)
  1. IBUPROFEN [Suspect]
     Dosage: 400 MG, QD
     Route: 048
     Dates: start: 20090309, end: 20090310

REACTIONS (3)
  - DIZZINESS [None]
  - PALPITATIONS [None]
  - PRESYNCOPE [None]
